FAERS Safety Report 8773417 (Version 1)
Quarter: 2012Q4

REPORT INFORMATION
  Report Type: 
  Country: DE (occurrence: DE)
  Receive Date: 20120907
  Receipt Date: 20120907
  Transmission Date: 20130627
  Serious: Yes (Other)
  Sender: FDA-Public Use
  Company Number: DE-JNJFOC-20120901967

PATIENT
  Age: 50 Year
  Sex: Male

DRUGS (3)
  1. TRAMADOL HYDROCHLORIDE [Suspect]
     Indication: NEOPLASM MALIGNANT
     Route: 065
  2. FENTANYL [Concomitant]
     Indication: NEOPLASM MALIGNANT
     Route: 062
  3. NALOXONE HYDROCHLORIDE, TILIDINE HYDROCHLORIDE [Concomitant]
     Indication: NEOPLASM MALIGNANT
     Route: 065

REACTIONS (1)
  - Epilepsy [Unknown]
